FAERS Safety Report 4541124-8 (Version None)
Quarter: 2004Q4

REPORT INFORMATION
  Report Type: 
  Country: None (occurrence: None)
  Receive Date: 20041228
  Receipt Date: 20041222
  Transmission Date: 20050328
  Serious: Yes (Death, Other)
  Sender: FDA-Public Use
  Company Number: USA-2004-0017210

PATIENT
  Sex: Male
  Weight: 104.3 kg

DRUGS (7)
  1. OXYCONTIN [Suspect]
     Indication: PAIN
  2. CAFFEINE (CAFFEINE) [Suspect]
  3. METHADONE (METHADONE) [Suspect]
  4. DEXTROMETHORPHAN HYDROBROMIDE [Suspect]
  5. AMITRIPTYLINE (AMITRIPTYLINE) [Suspect]
  6. ACETAMINOPHEN [Suspect]
  7. DOXYLAMINE (DOXYLAMINE) [Suspect]

REACTIONS (10)
  - ANXIETY [None]
  - DEPRESSION [None]
  - DRUG ABUSER [None]
  - DRUG DEPENDENCE [None]
  - EMOTIONAL DISORDER [None]
  - INJURY [None]
  - MALAISE [None]
  - MENTAL DISORDER [None]
  - MULTIPLE DRUG OVERDOSE [None]
  - PAIN [None]
